FAERS Safety Report 6684568-0 (Version None)
Quarter: 2010Q2

REPORT INFORMATION
  Report Type: 
  Country: None (occurrence: None)
  Receive Date: 20100416
  Receipt Date: 20100407
  Transmission Date: 20101027
  Serious: Yes (Other)
  Sender: FDA-Public Use
  Company Number: US-ROCHE-697060

PATIENT
  Sex: Female
  Weight: 68 kg

DRUGS (1)
  1. ROCEPHIN [Suspect]
     Route: 042
     Dates: start: 20100402

REACTIONS (10)
  - AGITATION [None]
  - CONFUSIONAL STATE [None]
  - DIZZINESS [None]
  - DYSARTHRIA [None]
  - HEADACHE [None]
  - HEART RATE INCREASED [None]
  - MALAISE [None]
  - PHOTOPHOBIA [None]
  - VISION BLURRED [None]
  - VITREOUS FLOATERS [None]
